FAERS Safety Report 25939423 (Version 1)
Quarter: 2025Q4

REPORT INFORMATION
  Report Type: Other
  Country: CA (occurrence: CA)
  Receive Date: 20251020
  Receipt Date: 20251020
  Transmission Date: 20260117
  Serious: Yes (Other)
  Sender: GLENMARK
  Company Number: CA-GLENMARK PHARMACEUTICALS-2025GMK104861

PATIENT
  Sex: Female

DRUGS (48)
  1. GABAPENTIN [Suspect]
     Active Substance: GABAPENTIN
     Indication: Product used for unknown indication
     Route: 065
  2. ACETAMINOPHEN AND CODEINE [Suspect]
     Active Substance: ACETAMINOPHEN\CODEINE PHOSPHATE
     Indication: Pruritus
     Dosage: UNK
     Route: 065
  3. ACETAMINOPHEN AND CODEINE [Suspect]
     Active Substance: ACETAMINOPHEN\CODEINE PHOSPHATE
     Dosage: UNK
     Route: 065
  4. ALENDRONIC ACID [Suspect]
     Active Substance: ALENDRONIC ACID
     Indication: Osteoporosis postmenopausal
     Dosage: 1 DOSAGE FORM
     Route: 065
  5. ALENDRONIC ACID [Suspect]
     Active Substance: ALENDRONIC ACID
     Dosage: 1 DOSAGE FORM
     Route: 065
  6. AMITRIPTYLINE [Suspect]
     Active Substance: AMITRIPTYLINE
     Indication: Depression
     Dosage: UNK
     Route: 065
  7. AMITRIPTYLINE [Suspect]
     Active Substance: AMITRIPTYLINE
     Dosage: UNK
     Route: 065
  8. ATROVENT HFA [Suspect]
     Active Substance: IPRATROPIUM BROMIDE
     Indication: Product used for unknown indication
     Dosage: UNK
     Route: 065
  9. ATROVENT HFA [Suspect]
     Active Substance: IPRATROPIUM BROMIDE
     Indication: Product used for unknown indication
     Dosage: UNK
     Route: 065
  10. BUPROPION [Suspect]
     Active Substance: BUPROPION
     Indication: Urticaria
     Route: 065
  11. BUPROPION [Suspect]
     Active Substance: BUPROPION
     Dosage: UNK
     Route: 065
  12. CEFUROXIME AXETIL [Suspect]
     Active Substance: CEFUROXIME AXETIL
     Indication: Product used for unknown indication
     Dosage: UNK
     Route: 065
  13. CELEBREX [Suspect]
     Active Substance: CELECOXIB
     Indication: Oesophageal pain
     Route: 065
  14. CELEBREX [Suspect]
     Active Substance: CELECOXIB
     Indication: Abdominal pain upper
  15. CELECOXIB [Suspect]
     Active Substance: CELECOXIB
     Indication: Oesophageal pain
     Route: 065
  16. CELECOXIB [Suspect]
     Active Substance: CELECOXIB
     Indication: Abdominal pain upper
  17. CELECOXIB [Suspect]
     Active Substance: CELECOXIB
     Indication: Oesophageal pain
     Route: 065
  18. CELECOXIB [Suspect]
     Active Substance: CELECOXIB
     Indication: Abdominal pain upper
  19. CIPROFLOXACIN [Suspect]
     Active Substance: CIPROFLOXACIN
     Indication: Urticaria
     Dosage: UNK
     Route: 065
  20. CLARITHROMYCIN [Suspect]
     Active Substance: CLARITHROMYCIN
     Indication: Cystitis
     Dosage: UNK
     Route: 065
  21. CLOPIDOGREL [Suspect]
     Active Substance: CLOPIDOGREL BISULFATE
     Indication: Anticoagulant therapy
     Dosage: UNK
     Route: 065
  22. CYMBALTA [Suspect]
     Active Substance: DULOXETINE HYDROCHLORIDE
     Indication: Depression
     Route: 065
  23. CYMBALTA [Suspect]
     Active Substance: DULOXETINE HYDROCHLORIDE
     Indication: Anxiety
     Dosage: 1 DOSAGE FORM, 1 EVERY 1 DAYS
     Route: 065
  24. FERROUS GLUCONATE [Suspect]
     Active Substance: FERROUS GLUCONATE
     Indication: Iron deficiency
     Dosage: UNK
     Route: 065
  25. FERROUS GLUCONATE [Suspect]
     Active Substance: FERROUS GLUCONATE
     Dosage: UNK
     Route: 065
  26. FUROSEMIDE [Suspect]
     Active Substance: FUROSEMIDE
     Indication: Fluid retention
     Dosage: UNK
     Route: 065
  27. NITROGLYCERIN [Suspect]
     Active Substance: NITROGLYCERIN
     Indication: Oesophageal spasm
     Dosage: UNK
     Route: 065
  28. GRAVOL [Suspect]
     Active Substance: DIMENHYDRINATE
     Indication: Anxiety
     Dosage: UNK
     Route: 065
  29. INDOMETHACIN SODIUM [Suspect]
     Active Substance: INDOMETHACIN SODIUM
     Indication: Vomiting
     Dosage: UNK
     Route: 065
  30. INDOMETHACIN SODIUM [Suspect]
     Active Substance: INDOMETHACIN SODIUM
     Indication: Vision blurred
     Dosage: UNK
     Route: 065
  31. INDOMETHACIN SODIUM [Suspect]
     Active Substance: INDOMETHACIN SODIUM
     Indication: Abdominal pain
     Dosage: UNK
     Route: 065
  32. INDOMETHACIN SODIUM [Suspect]
     Active Substance: INDOMETHACIN SODIUM
     Dosage: UNK
     Route: 065
  33. KETAMINE [Suspect]
     Active Substance: KETAMINE
     Indication: Hallucination
     Dosage: UNK
     Route: 065
  34. MOXIFLOXACIN [Suspect]
     Active Substance: MOXIFLOXACIN
     Indication: Rash
     Dosage: UNK
     Route: 065
  35. NAPROXEN SODIUM [Suspect]
     Active Substance: NAPROXEN SODIUM
     Indication: Pruritus
     Dosage: UNK
     Route: 065
  36. NAPROXEN SODIUM [Suspect]
     Active Substance: NAPROXEN SODIUM
     Dosage: UNK
     Route: 065
  37. NITROGLYCERIN [Suspect]
     Active Substance: NITROGLYCERIN
     Indication: Oesophageal spasm
     Dosage: UNK
     Route: 065
  38. PERINDOPRIL [Suspect]
     Active Substance: PERINDOPRIL
     Indication: Blood pressure measurement
     Dosage: 1 DOSAGE FORM, 1 EVERY 1 DAYS
     Route: 065
  39. POTASSIUM CHLORIDE [Suspect]
     Active Substance: POTASSIUM CHLORIDE
     Indication: Product used for unknown indication
     Dosage: UNK
     Route: 065
  40. PREDNISONE [Suspect]
     Active Substance: PREDNISONE
     Indication: Product used for unknown indication
     Dosage: UNK
     Route: 065
  41. ALBUTEROL [Suspect]
     Active Substance: ALBUTEROL
     Indication: Product used for unknown indication
     Dosage: UNK
     Route: 065
  42. SENOKOT [Suspect]
     Active Substance: SENNOSIDES
     Indication: Abdominal pain
     Dosage: UNK
     Route: 065
  43. SULFAMETHOXAZOLE\TRIMETHOPRIM [Suspect]
     Active Substance: SULFAMETHOXAZOLE\TRIMETHOPRIM
     Indication: Stomatitis
     Dosage: UNK
     Route: 065
  44. SULFAMETHOXAZOLE\TRIMETHOPRIM [Suspect]
     Active Substance: SULFAMETHOXAZOLE\TRIMETHOPRIM
     Dosage: UNK
     Route: 065
  45. TIOTROPIUM BROMIDE MONOHYDRATE [Suspect]
     Active Substance: TIOTROPIUM BROMIDE MONOHYDRATE
     Indication: Product used for unknown indication
     Dosage: UNK
     Route: 065
  46. TIOTROPIUM BROMIDE MONOHYDRATE [Suspect]
     Active Substance: TIOTROPIUM BROMIDE MONOHYDRATE
     Dosage: UNK
     Route: 065
  47. VIOXX [Suspect]
     Active Substance: ROFECOXIB
     Indication: Urticaria
     Dosage: UNK
     Route: 065
  48. VITAMIN D3 [Suspect]
     Active Substance: CHOLECALCIFEROL
     Indication: Osteoporosis postmenopausal
     Dosage: 1 DOSAGE FORM
     Route: 065

REACTIONS (18)
  - Fibromyalgia [Unknown]
  - Lymphoedema [Unknown]
  - Fluid retention [Unknown]
  - Feeling abnormal [Unknown]
  - Migraine [Unknown]
  - Hyperhidrosis [Unknown]
  - Cystitis [Unknown]
  - Abdominal pain [Unknown]
  - Abdominal pain upper [Unknown]
  - Bronchitis [Unknown]
  - Diarrhoea [Unknown]
  - Malaise [Unknown]
  - Hallucination [Unknown]
  - Agitation [Unknown]
  - Anxiety [Unknown]
  - Depression [Unknown]
  - Dizziness [Unknown]
  - Fatigue [Unknown]
